FAERS Safety Report 9371028 (Version 2)
Quarter: 2013Q3

REPORT INFORMATION
  Report Type: Spontaneous
  Country: FR (occurrence: FR)
  Receive Date: 20130627
  Receipt Date: 20130729
  Transmission Date: 20140515
  Serious: Yes (Hospitalization)
  Sender: FDA-Public Use
  Company Number: FR-ROCHE-1239498

PATIENT
  Age: 43 Year
  Sex: Female
  Weight: 83 kg

DRUGS (4)
  1. HERCEPTIN [Suspect]
     Indication: BREAST CANCER
     Route: 042
     Dates: start: 20121120, end: 20130603
  2. ENDOXAN [Suspect]
     Indication: BREAST CANCER
     Dosage: CYCLICAL
     Route: 042
  3. TAXOTERE [Concomitant]
     Route: 065
  4. SOTALOL [Concomitant]
     Indication: HYPERTENSION
     Route: 048

REACTIONS (1)
  - Pancreatitis acute [Recovered/Resolved]
